FAERS Safety Report 9603309 (Version 2)
Quarter: 2013Q4

REPORT INFORMATION
  Report Type: Spontaneous
  Country: JP (occurrence: JP)
  Receive Date: 20131007
  Receipt Date: 20131007
  Transmission Date: 20140711
  Serious: Yes (Life-Threatening)
  Sender: FDA-Public Use
  Company Number: JP-PFIZER INC-2013254636

PATIENT
  Age: 87 Year
  Sex: Female
  Weight: 69 kg

DRUGS (9)
  1. LYRICA [Suspect]
     Indication: PAIN IN EXTREMITY
     Dosage: 75 MG, 1X/DAY
     Route: 048
     Dates: start: 20110124, end: 20110225
  2. LYRICA [Suspect]
     Indication: HYPOAESTHESIA
  3. LIMAPROST [Concomitant]
     Indication: LUMBAR SPINAL STENOSIS
     Dosage: 5 MG, 3X/DAY
     Route: 048
     Dates: start: 20101025
  4. REBAMIPIDE [Concomitant]
     Dosage: 1 DF, 3X/DAY
     Route: 048
     Dates: start: 20101025
  5. METHYCOBAL [Concomitant]
     Indication: NEURALGIA
     Dosage: 1 DF, 3X/DAY
     Route: 048
     Dates: start: 20101025
  6. NEUROTROPIN [Concomitant]
     Indication: NEURALGIA
     Dosage: 2 DF, 2X/DAY
     Route: 048
     Dates: start: 20101025
  7. MICAMLO [Concomitant]
     Dosage: UNK
  8. EVISTA [Concomitant]
     Indication: OSTEOPOROSIS
     Dosage: 1 DF, 1X/DAY
     Route: 048
     Dates: start: 20101025
  9. GASTER D [Concomitant]
     Indication: GASTROOESOPHAGEAL REFLUX DISEASE
     Dosage: 20 MG, 2X/DAY
     Route: 048
     Dates: start: 20101025

REACTIONS (1)
  - Renal failure acute [Recovered/Resolved]
